FAERS Safety Report 7805949-5 (Version None)
Quarter: 2011Q4

REPORT INFORMATION
  Report Type: 
  Country: None (occurrence: None)
  Receive Date: 20111007
  Receipt Date: 20111007
  Transmission Date: 20120403
  Serious: Yes (Hospitalization)
  Sender: FDA-Public Use
  Company Number: None

PATIENT
  Sex: Male
  Weight: 94.3 kg

DRUGS (9)
  1. DOXORUBICIN HCL [Suspect]
     Dosage: 96 MG
  2. DEXAMETHASONE [Suspect]
     Dosage: 80 MG
  3. METHOTREXATE [Suspect]
     Dosage: 2835 MG
  4. RITUXIMAB (MOAB C2B8 ANTI CD20, CHIMERIC) [Suspect]
     Dosage: 730 MG
  5. IFOSFAMIDE [Suspect]
     Dosage: 7500 MG
  6. MESNA [Suspect]
     Dosage: 3800 MG
  7. VINCRISTINE [Suspect]
     Dosage: 2 MG
  8. CYTARABINE [Suspect]
     Dosage: 3800 MG
  9. ETOPOSIDE [Suspect]
     Dosage: 300 MG

REACTIONS (1)
  - MYELODYSPLASTIC SYNDROME [None]
